FAERS Safety Report 7441970-7 (Version None)
Quarter: 2011Q2

REPORT INFORMATION
  Report Type: 
  Country: None (occurrence: None)
  Receive Date: 20110428
  Receipt Date: 20100817
  Transmission Date: 20111010
  Serious: No
  Sender: FDA-Public Use
  Company Number: US-ASTRAZENECA-2010SE32882

PATIENT
  Sex: Male

DRUGS (4)
  1. ZOMIG [Suspect]
     Route: 065
     Dates: start: 19970101
  2. ZOMIG [Suspect]
     Indication: MIGRAINE
     Route: 065
     Dates: start: 19960101, end: 19970101
  3. PRILOSEC [Concomitant]
  4. CITALOPRAM [Concomitant]

REACTIONS (5)
  - HEADACHE [None]
  - BLINDNESS TRANSIENT [None]
  - DRUG INEFFECTIVE [None]
  - DRUG DOSE OMISSION [None]
  - MIGRAINE [None]
